FAERS Safety Report 17076229 (Version 4)
Quarter: 2020Q1

REPORT INFORMATION
  Report Type: Report from Study
  Country: US (occurrence: US)
  Receive Date: 20191126
  Receipt Date: 20200324
  Transmission Date: 20200409
  Serious: Yes (Hospitalization, Other)
  Sender: FDA-Public Use
  Company Number: PHHY2019US103171

PATIENT
  Age: 10 Year
  Sex: Female
  Weight: 22 kg

DRUGS (5)
  1. PIQRAY [Suspect]
     Active Substance: ALPELISIB
     Dosage: 50 MG, UNK
     Route: 048
     Dates: end: 20190403
  2. PIQRAY [Suspect]
     Active Substance: ALPELISIB
     Indication: VASCULAR MALFORMATION
     Dosage: 50 MG, UNK
     Route: 048
     Dates: start: 20190320, end: 20190324
  3. PIQRAY [Suspect]
     Active Substance: ALPELISIB
     Dosage: 50 MG, UNK
     Route: 048
     Dates: end: 20190725
  4. PIQRAY [Suspect]
     Active Substance: ALPELISIB
     Dosage: 50 MG, UNK
     Route: 048
     Dates: start: 20190903, end: 20191119
  5. PIQRAY [Suspect]
     Active Substance: ALPELISIB
     Dosage: 100 MG
     Route: 048
     Dates: start: 20200113

REACTIONS (12)
  - Pyrexia [Recovering/Resolving]
  - Influenza [Recovered/Resolved]
  - Scoliosis [Not Recovered/Not Resolved]
  - Pyrexia [Recovered/Resolved]
  - Nasopharyngitis [Recovered/Resolved]
  - Gastrostomy tube site complication [Unknown]
  - Urinary tract infection bacterial [Recovering/Resolving]
  - Pain [Recovered/Resolved]
  - Enterobacter infection [Recovering/Resolving]
  - Weight gain poor [Recovered/Resolved]
  - Arthralgia [Not Recovered/Not Resolved]
  - Urinary tract infection [Recovered/Resolved]

NARRATIVE: CASE EVENT DATE: 20190324
